FAERS Safety Report 8501013-0 (Version None)
Quarter: 2012Q3

REPORT INFORMATION
  Report Type: 
  Country: None (occurrence: None)
  Receive Date: 20120710
  Receipt Date: 20120625
  Transmission Date: 20120928
  Serious: Yes (Death, Hospitalization)
  Sender: FDA-Public Use
  Company Number: DE-CELGENEUS-062-50794-12062930

PATIENT
  Age: 74 Year
  Sex: Male
  Weight: 85 kg

DRUGS (9)
  1. METFORMIN HCL [Concomitant]
     Indication: DIABETES MELLITUS
     Route: 048
     Dates: end: 20120528
  2. VIDAZA [Suspect]
     Route: 058
     Dates: start: 20120312, end: 20120316
  3. SIMVASTATIN [Concomitant]
     Route: 048
     Dates: end: 20120528
  4. MOLSIDOMINE [Concomitant]
     Route: 048
     Dates: end: 20120528
  5. RAMICLAIR [Concomitant]
     Route: 048
     Dates: end: 20120528
  6. VIDAZA [Suspect]
     Route: 058
     Dates: start: 20120423, end: 20120502
  7. ASPIRIN [Concomitant]
     Route: 048
     Dates: end: 20120528
  8. ISOSORBIDE NITRAT [Concomitant]
     Route: 048
     Dates: end: 20120528
  9. PANTOPRAZOLE [Concomitant]
     Indication: GASTRITIS
     Route: 048
     Dates: end: 20120528

REACTIONS (2)
  - CARDIAC FAILURE [None]
  - DYSPNOEA [None]
